FAERS Safety Report 10024493 (Version 2)
Quarter: 2014Q1

REPORT INFORMATION
  Report Type: Spontaneous
  Country: US (occurrence: US)
  Receive Date: 20140320
  Receipt Date: 20140321
  Transmission Date: 20141002
  Serious: Yes (Hospitalization)
  Sender: FDA-Public Use
  Company Number: US-BAYER-2014-039435

PATIENT
  Age: 22 Year
  Sex: Female
  Weight: 58.96 kg

DRUGS (13)
  1. MIRENA [Suspect]
     Indication: CONTRACEPTION
     Dosage: 20 MCG/24HR, CONT
     Route: 015
     Dates: start: 20100319, end: 20120125
  2. PERCOCET [Concomitant]
  3. CELEXA [Concomitant]
     Dosage: 20 MG, UNK
     Route: 048
     Dates: start: 20120112
  4. DOXYCYCLINE [Concomitant]
     Dosage: 100 MG, BID
     Route: 048
     Dates: start: 20111226
  5. FLAGYL [Concomitant]
     Dosage: 500 MG, BID
     Route: 048
  6. Z-PAK [Concomitant]
     Indication: OTITIS MEDIA
     Route: 048
  7. Z-PAK [Concomitant]
     Indication: UPPER RESPIRATORY TRACT INFECTION
  8. PROZAC [Concomitant]
     Dosage: 20 MG, UNK
     Route: 048
     Dates: start: 20120112
  9. FLEXERIL [Concomitant]
  10. PONSTEL [Concomitant]
  11. VALIUM [Concomitant]
  12. KETOROLAC [Concomitant]
     Dosage: 60 MG, UNK
     Route: 030
  13. ULTRAM [Concomitant]

REACTIONS (5)
  - Uterine perforation [None]
  - Pain [None]
  - Injury [None]
  - Emotional distress [None]
  - Device dislocation [None]
